FAERS Safety Report 15889610 (Version 2)
Quarter: 2019Q1

REPORT INFORMATION
  Report Type: Report from Study
  Country: BR (occurrence: BR)
  Receive Date: 20190130
  Receipt Date: 20190306
  Transmission Date: 20190417
  Serious: Yes (Hospitalization, Other)
  Sender: FDA-Public Use
  Company Number: BR-UCBSA-2018054062

PATIENT
  Age: 38 Year
  Sex: Female
  Weight: 82 kg

DRUGS (5)
  1. TAPAZOL [Concomitant]
     Indication: HYPOTHYROIDISM
     Dosage: 20 MG, ONCE DAILY (QD)
     Route: 048
     Dates: start: 2007
  2. LEVETIRACETAM. [Suspect]
     Active Substance: LEVETIRACETAM
     Indication: EPILEPSY
     Dosage: 750 MG, 2X/DAY (BID)
     Route: 048
     Dates: start: 2009
  3. TOPIRAMATO [Concomitant]
     Active Substance: TOPIRAMATE
     Indication: EPILEPSY
     Dosage: 200 MG, 2X/DAY (BID)
     Route: 048
     Dates: start: 1998
  4. TOPIRAMATE. [Concomitant]
     Active Substance: TOPIRAMATE
     Indication: EPILEPSY
  5. LEVETIRACETAM. [Suspect]
     Active Substance: LEVETIRACETAM
     Dosage: 2250 MG, 2X/DAY (BID)
     Route: 048
     Dates: start: 2015

REACTIONS (7)
  - Urinary tract infection [Recovered/Resolved]
  - Fall [Recovered/Resolved]
  - Blister [Not Recovered/Not Resolved]
  - Overdose [Unknown]
  - Seizure [Unknown]
  - Petit mal epilepsy [Unknown]
  - Off label use [Unknown]

NARRATIVE: CASE EVENT DATE: 2015
